FAERS Safety Report 13689416 (Version 1)
Quarter: 2017Q2

REPORT INFORMATION
  Report Type: Spontaneous
  Country: US (occurrence: US)
  Receive Date: 20170625
  Receipt Date: 20170625
  Transmission Date: 20170830
  Serious: No
  Sender: FDA-Public Use
  Company Number: None

PATIENT
  Age: 40 Year
  Sex: Female
  Weight: 103.5 kg

DRUGS (2)
  1. GABAPENTIN. [Suspect]
     Active Substance: GABAPENTIN
     Indication: NEURALGIA
     Route: 048
     Dates: start: 20160407
  2. ELMIRON [Concomitant]
     Active Substance: PENTOSAN POLYSULFATE SODIUM

REACTIONS (13)
  - Reading disorder [None]
  - Aphasia [None]
  - Depression [None]
  - Vision blurred [None]
  - Depersonalisation/derealisation disorder [None]
  - Suicidal ideation [None]
  - Abdominal pain upper [None]
  - Crying [None]
  - Headache [None]
  - Rash [None]
  - Neuralgia [None]
  - Personality change [None]
  - Withdrawal syndrome [None]

NARRATIVE: CASE EVENT DATE: 20160407
